FAERS Safety Report 5045613-1 (Version None)
Quarter: 2006Q3

REPORT INFORMATION
  Report Type: 
  Country: None (occurrence: None)
  Receive Date: 20060707
  Receipt Date: 20060628
  Transmission Date: 20061208
  Serious: Yes (Other)
  Sender: FDA-Public Use
  Company Number: BR-JNJFOC-20060700395

PATIENT
  Age: 16 Year
  Sex: Male

DRUGS (1)
  1. HALDOL [Suspect]
     Indication: INTENTIONAL DRUG MISUSE
     Dosage: 2 TABLETS OF AN UNSPECIFIED DOSE
     Route: 048

REACTIONS (2)
  - DYSTONIA [None]
  - INTENTIONAL DRUG MISUSE [None]
